FAERS Safety Report 23242015 (Version 2)
Quarter: 2023Q4

REPORT INFORMATION
  Report Type: Spontaneous
  Country: ES (occurrence: ES)
  Receive Date: 20231129
  Receipt Date: 20231207
  Transmission Date: 20240109
  Serious: Yes (Hospitalization, Other)
  Sender: FDA-Public Use
  Company Number: ES-PFIZER INC-PV202300177803

PATIENT
  Age: 59 Year
  Sex: Female

DRUGS (5)
  1. LETROZOLE [Suspect]
     Active Substance: LETROZOLE
     Indication: Breast cancer
     Dosage: 2.5 MILLIGRAM, QD (2.5 MG, DAILY)
     Route: 065
  2. FULVESTRANT [Suspect]
     Active Substance: FULVESTRANT
     Indication: Breast cancer
     Dosage: UNK
     Route: 030
  3. PALBOCICLIB [Suspect]
     Active Substance: PALBOCICLIB
     Indication: Breast cancer
     Dosage: 125 MILLIGRAM/SQ. METER
     Route: 028
     Dates: start: 20230522
  4. LETROZOLE [Concomitant]
     Active Substance: LETROZOLE
     Dosage: 2.5 MILLIGRAM, QD
     Route: 065
  5. CAPECITABINE [Concomitant]
     Active Substance: CAPECITABINE
     Dosage: 1500 MILLIGRAM, BID
     Route: 065
     Dates: start: 20230207

REACTIONS (12)
  - Intestinal obstruction [Recovered/Resolved]
  - Peritonitis [Unknown]
  - Liver abscess [Unknown]
  - Peritoneal fluid analysis abnormal [Unknown]
  - Metastases to peritoneum [Unknown]
  - Portal vein thrombosis [Unknown]
  - General physical health deterioration [Unknown]
  - Early satiety [Unknown]
  - Neoplasm progression [Unknown]
  - Asthenia [Unknown]
  - Pyrexia [Recovered/Resolved]
  - Decreased appetite [Unknown]

NARRATIVE: CASE EVENT DATE: 20230807
